FAERS Safety Report 6835555-0 (Version None)
Quarter: 2010Q3

REPORT INFORMATION
  Report Type: 
  Country: None (occurrence: None)
  Receive Date: 20100713
  Receipt Date: 20100709
  Transmission Date: 20110219
  Serious: Yes (Death)
  Sender: FDA-Public Use
  Company Number: PHHY2010EC45276

PATIENT
  Age: 78 Year
  Sex: Female

DRUGS (4)
  1. DIOVAN [Suspect]
     Indication: HYPERTENSION
     Dosage: 1 DF, DAILY
     Route: 048
  2. LEVOTIROXINA [Concomitant]
     Dosage: UNK
  3. WARFARIN SODIUM [Concomitant]
     Dosage: UNK
  4. GLUCOFAGE [Concomitant]
     Dosage: UNK

REACTIONS (2)
  - COLON CANCER [None]
  - CONDITION AGGRAVATED [None]
